FAERS Safety Report 7877293 (Version 2)
Quarter: 2012Q4

REPORT INFORMATION
  Report Type: 
  Country: US (occurrence: US)
  Receive Date: 20110330
  Receipt Date: 20121119
  Transmission Date: 20130627
  Serious: Yes (Hospitalization, Other)
  Sender: FDA-Public Use
  Company Number: US-PFIZER INC-2011065979

PATIENT
  Sex: Female

DRUGS (3)
  1. RAPAMUNE [Suspect]
     Indication: LIVER TRANSPLANT
     Dosage: unspecified
  2. SEPTRA [Suspect]
     Dosage: UNK
  3. PREDNISONE [Suspect]
     Indication: LIVER TRANSPLANT
     Dosage: taper

REACTIONS (1)
  - Hepatic function abnormal [Unknown]
